FAERS Safety Report 12842703 (Version 3)
Quarter: 2016Q4

REPORT INFORMATION
  Report Type: Spontaneous
  Country: US (occurrence: US)
  Receive Date: 20161013
  Receipt Date: 20161216
  Transmission Date: 20170207
  Serious: No
  Sender: FDA-Public Use
  Company Number: US-PFIZER INC-2016462696

PATIENT
  Age: 62 Year
  Sex: Male
  Weight: 65.77 kg

DRUGS (6)
  1. 5-FU [Concomitant]
     Active Substance: FLUOROURACIL
     Indication: COLORECTAL CANCER
     Dosage: 1800 MG/M2, CYCLIC (CONTINUOUS INTRAVENOUS THERAPY FOR 72 HOURS)
     Route: 042
     Dates: start: 201605, end: 20160815
  2. IBRANCE [Suspect]
     Active Substance: PALBOCICLIB
     Dosage: 100 MG, CYCLIC (FOR SEVEN DAYS OUT OF EACH CYCLE)
     Route: 048
     Dates: start: 20160517, end: 20160815
  3. IRINOTECAN [Concomitant]
     Active Substance: IRINOTECAN
     Dosage: UNK
  4. IBRANCE [Suspect]
     Active Substance: PALBOCICLIB
     Dosage: 100 MG, CYCLIC (TWICE A DAY FOR SEVEN DAYS, AND THEN REST FOR SEVEN DAYS)
     Route: 048
     Dates: start: 20161025
  5. IBRANCE [Suspect]
     Active Substance: PALBOCICLIB
     Indication: COLORECTAL CANCER
     Dosage: UNK
     Route: 048
     Dates: start: 20150407, end: 20160815
  6. LEUCOVORIN. [Concomitant]
     Active Substance: LEUCOVORIN
     Dosage: UNK

REACTIONS (2)
  - Product use issue [Unknown]
  - Neoplasm progression [Unknown]

NARRATIVE: CASE EVENT DATE: 20150407
